FAERS Safety Report 23788624 (Version 1)
Quarter: 2024Q2

REPORT INFORMATION
  Report Type: Spontaneous
  Country: US (occurrence: None)
  Receive Date: 20240425
  Receipt Date: 20240425
  Transmission Date: 20240716
  Serious: No
  Sender: FDA-Public Use
  Company Number: None

PATIENT
  Age: 91 Year
  Sex: Female
  Weight: 68.04 kg

DRUGS (8)
  1. RECLAST [Suspect]
     Active Substance: ZOLEDRONIC ACID
     Indication: Osteoporosis
  2. LOSARTAN [Concomitant]
     Active Substance: LOSARTAN
  3. FAMOTIDINE [Concomitant]
     Active Substance: FAMOTIDINE
  4. AMLODIPINE [Concomitant]
     Active Substance: AMLODIPINE BESYLATE
  5. DORZOLAMIDE [Concomitant]
     Active Substance: DORZOLAMIDE
  6. VITAMIN D [Concomitant]
     Active Substance: VITAMIN D NOS
  7. CALCIUM [Concomitant]
     Active Substance: CALCIUM
  8. VITAMIN C [Concomitant]
     Active Substance: ASCORBIC ACID

REACTIONS (6)
  - Arthralgia [None]
  - Gait disturbance [None]
  - Sciatica [None]
  - Femur fracture [None]
  - Arthritis [None]
  - Gait disturbance [None]

NARRATIVE: CASE EVENT DATE: 20220921
